FAERS Safety Report 7588911-X (Version None)
Quarter: 2011Q3

REPORT INFORMATION
  Report Type: 
  Country: None (occurrence: None)
  Receive Date: 20110705
  Receipt Date: 20110620
  Transmission Date: 20111222
  Serious: Yes (Other)
  Sender: FDA-Public Use
  Company Number: CN-BAYER-2011-052391

PATIENT
  Sex: Female

DRUGS (1)
  1. CLOTRIMAZOLE [Suspect]
     Indication: VULVOVAGINITIS
     Dosage: 1 DF, ONCE
     Route: 067
     Dates: start: 20110617

REACTIONS (1)
  - VAGINAL HAEMORRHAGE [None]
